FAERS Safety Report 6763245-1 (Version None)
Quarter: 2010Q2

REPORT INFORMATION
  Report Type: 
  Country: None (occurrence: None)
  Receive Date: 20100608
  Receipt Date: 20100608
  Transmission Date: 20101027
  Serious: Yes (Other)
  Sender: FDA-Public Use
  Company Number: None

PATIENT
  Age: 72 Year
  Sex: Female
  Weight: 46.2669 kg

DRUGS (1)
  1. CLARITHROMYCIN [Suspect]
     Indication: INFECTED BITES
     Dosage: 500 MG 2X/DAY PO, 5 DOSES
     Route: 048
     Dates: start: 20100604, end: 20100606

REACTIONS (3)
  - INSOMNIA [None]
  - MOVEMENT DISORDER [None]
  - PAIN IN EXTREMITY [None]
